FAERS Safety Report 6750882-3 (Version None)
Quarter: 2010Q2

REPORT INFORMATION
  Report Type: 
  Country: None (occurrence: None)
  Receive Date: 20100602
  Receipt Date: 20100527
  Transmission Date: 20101027
  Serious: Yes (Life-Threatening, Hospitalization, Other)
  Sender: FDA-Public Use
  Company Number: US-BAYER-201024068NA

PATIENT
  Sex: Female

DRUGS (1)
  1. YAZ [Suspect]
     Indication: DRUG USE FOR UNKNOWN INDICATION
     Route: 048

REACTIONS (6)
  - AORTIC VALVE DISEASE [None]
  - ASTHENIA [None]
  - DEEP VEIN THROMBOSIS [None]
  - DEFORMITY [None]
  - FATIGUE [None]
  - PAIN [None]
